FAERS Safety Report 22011133 (Version 6)
Quarter: 2023Q2

REPORT INFORMATION
  Report Type: Report from Study
  Country: US (occurrence: US)
  Receive Date: 20230220
  Receipt Date: 20230530
  Transmission Date: 20230721
  Serious: Yes (Hospitalization)
  Sender: FDA-Public Use
  Company Number: US-PFIZER INC-PV202300027973

PATIENT
  Age: 69 Year
  Sex: Male
  Weight: 101.2 kg

DRUGS (7)
  1. SASANLIMAB [Suspect]
     Active Substance: SASANLIMAB
     Indication: Non-small cell lung cancer
     Dosage: 225 MG, GIVEN DAY 1 EVERY 21 DAYS
     Route: 058
     Dates: start: 20221020
  2. AXITINIB [Suspect]
     Active Substance: AXITINIB
     Indication: Non-small cell lung cancer
     Dosage: 5 MG, 2X/DAY
     Route: 048
     Dates: start: 20221020, end: 20221222
  3. AXITINIB [Suspect]
     Active Substance: AXITINIB
     Dosage: 3 MG, 2X/DAY
     Route: 048
     Dates: start: 20221222, end: 20230203
  4. SGN-TGT [Suspect]
     Active Substance: SGN-TGT
     Indication: Non-small cell lung cancer
     Dosage: 112.32 MG, GIVEN DAY 1 EVERY 21 DAYS
     Route: 042
     Dates: start: 20221020
  5. TRIAMCINOLONE [Concomitant]
     Active Substance: TRIAMCINOLONE
     Indication: Rash maculo-papular
     Dosage: 0.1 %, AS NEEDED
     Route: 061
     Dates: start: 20220112
  6. PREDNISONE [Concomitant]
     Active Substance: PREDNISONE
     Indication: Blood creatinine increased
     Dosage: 20 MG, TAPER
     Route: 048
     Dates: start: 20230203, end: 20230214
  7. BACTRIM [Concomitant]
     Active Substance: SULFAMETHOXAZOLE\TRIMETHOPRIM
     Indication: Blood creatinine increased
     Dosage: 800 MG, DAILY
     Route: 048
     Dates: start: 20230203

REACTIONS (1)
  - Acute kidney injury [Recovered/Resolved]

NARRATIVE: CASE EVENT DATE: 20230209
